FAERS Safety Report 6784236-0 (Version None)
Quarter: 2010Q2

REPORT INFORMATION
  Report Type: 
  Country: None (occurrence: None)
  Receive Date: 20100622
  Receipt Date: 20100611
  Transmission Date: 20101027
  Serious: Yes (Other)
  Sender: FDA-Public Use
  Company Number: US-JNJFOC-20100511013

PATIENT
  Age: 3 Year
  Sex: Female
  Weight: 15.88 kg

DRUGS (2)
  1. CHILDREN'S TYLENOL SUSPENSION [Suspect]
     Indication: NASOPHARYNGITIS
     Dosage: AT 10AM
     Route: 048
  2. CHILDREN'S TYLENOL SUSPENSION [Suspect]
     Indication: COUGH
     Dosage: AT 10AM
     Route: 048

REACTIONS (7)
  - PRODUCT CONTAMINATION MICROBIAL [None]
  - PRODUCT CONTAMINATION PHYSICAL [None]
  - PRODUCT MEASURED POTENCY ISSUE [None]
  - PRODUCT QUALITY ISSUE [None]
  - SOMNOLENCE [None]
  - STUPOR [None]
  - UNRESPONSIVE TO STIMULI [None]
